FAERS Safety Report 8613990-8 (Version None)
Quarter: 2012Q3

REPORT INFORMATION
  Report Type: 
  Country: None (occurrence: None)
  Receive Date: 20120823
  Receipt Date: 20120817
  Transmission Date: 20120928
  Serious: No
  Sender: FDA-Public Use
  Company Number: US-PFIZER INC-2012203376

PATIENT
  Age: 47 Year
  Sex: Female
  Weight: 81.633 kg

DRUGS (2)
  1. LYRICA [Suspect]
     Indication: FIBROMYALGIA
     Dosage: 50 MG,DAILY
     Dates: start: 20120813
  2. LYRICA [Suspect]
     Indication: SKIN IRRITATION

REACTIONS (1)
  - BURNING SENSATION [None]
